FAERS Safety Report 7687825-4 (Version None)
Quarter: 2011Q3

REPORT INFORMATION
  Report Type: 
  Country: None (occurrence: None)
  Receive Date: 20110817
  Receipt Date: 20110805
  Transmission Date: 20111222
  Serious: Yes (Life-Threatening, Hospitalization)
  Sender: FDA-Public Use
  Company Number: FR-JNJFOC-20110805516

PATIENT
  Age: 76 Year
  Sex: Female

DRUGS (10)
  1. IRBESARTAN AND HYDROCHLOROTHIAZIDE [Concomitant]
     Route: 065
  2. MORPHINE SULFATE [Interacting]
     Indication: PRODUCT USED FOR UNKNOWN INDICATION
     Route: 048
     Dates: end: 20110311
  3. SIMAVASTATIN [Concomitant]
     Route: 065
  4. ATENOLOL [Concomitant]
     Route: 065
  5. FLUINDIONE [Interacting]
     Indication: PRODUCT USED FOR UNKNOWN INDICATION
     Route: 048
     Dates: end: 20110311
  6. LEVOTHYROXINE SODIUM [Concomitant]
     Route: 065
  7. ZOLPIDEM [Concomitant]
     Route: 065
  8. AMIODARONE HCL [Concomitant]
     Route: 065
  9. TRAMADOL HCL [Suspect]
     Indication: PRODUCT USED FOR UNKNOWN INDICATION
     Route: 048
     Dates: end: 20110311
  10. GLUCOPHAGE [Concomitant]
     Route: 065

REACTIONS (4)
  - RESPIRATORY ACIDOSIS [None]
  - HYPOVENTILATION [None]
  - HAEMATOMA [None]
  - DRUG INTERACTION [None]
